FAERS Safety Report 8563888-9 (Version None)
Quarter: 2012Q3

REPORT INFORMATION
  Report Type: 
  Country: None (occurrence: None)
  Receive Date: 20120713
  Receipt Date: 20120629
  Transmission Date: 20120928
  Serious: Yes (Death, Other)
  Sender: FDA-Public Use
  Company Number: 2012PROUSA01599

PATIENT
  Age: 68 Year
  Sex: Male
  Weight: 95.7 kg

DRUGS (1)
  1. PROVENGE [Suspect]
     Indication: PROSTATE CANCER METASTATIC
     Dosage: 250 ML, SINGLE, INTRAVENOUS
     Route: 042
     Dates: start: 20120514, end: 20120514

REACTIONS (3)
  - VARICES OESOPHAGEAL [None]
  - GASTROINTESTINAL HAEMORRHAGE [None]
  - HEPATIC CIRRHOSIS [None]
